FAERS Safety Report 5524666-8 (Version None)
Quarter: 2007Q4

REPORT INFORMATION
  Report Type: 
  Country: None (occurrence: None)
  Receive Date: 20071123
  Receipt Date: 20071116
  Transmission Date: 20080405
  Serious: Yes (Other)
  Sender: FDA-Public Use
  Company Number: ZA-SHR-ZA-2007-043592

PATIENT
  Age: 23 Year
  Sex: Female

DRUGS (1)
  1. YASMIN 30 (21+7) [Suspect]
     Indication: CONTRACEPTION
     Route: 048
     Dates: start: 20040101

REACTIONS (2)
  - SCHAMBERG'S DISEASE [None]
  - VASCULITIS [None]
